FAERS Safety Report 19515403 (Version 2)
Quarter: 2022Q4

REPORT INFORMATION
  Report Type: Spontaneous
  Country: CA (occurrence: CA)
  Receive Date: 20210709
  Receipt Date: 20221213
  Transmission Date: 20230113
  Serious: Yes (Hospitalization, Other)
  Sender: FDA-Public Use
  Company Number: CA-ALLERGAN-2125059US

PATIENT
  Sex: Male
  Weight: 3 kg

DRUGS (3)
  1. CITALOPRAM HYDROBROMIDE [Suspect]
     Active Substance: CITALOPRAM HYDROBROMIDE
     Indication: Foetal exposure during pregnancy
     Route: 064
  2. LAMOTRIGINE [Suspect]
     Active Substance: LAMOTRIGINE
     Indication: Foetal exposure during pregnancy
     Dosage: 100 MG IN THE MORNING AND 150 MG AT BED TIME, TAKEN BY THE MOTHER
     Route: 064
  3. VALTREX [Concomitant]
     Active Substance: VALACYCLOVIR HYDROCHLORIDE
     Indication: Foetal exposure during pregnancy
     Dosage: 500 MG, QD
     Route: 065

REACTIONS (7)
  - Infantile apnoea [Recovered/Resolved]
  - Neonatal disorder [Recovered/Resolved]
  - Neonatal hypoxia [Recovered/Resolved]
  - Positive end-expiratory pressure [Recovered/Resolved]
  - Tremor [Recovered/Resolved]
  - Oxygen therapy [Recovered/Resolved]
  - Maternal exposure during pregnancy [Unknown]

NARRATIVE: CASE EVENT DATE: 20210101
